FAERS Safety Report 25094265 (Version 1)
Quarter: 2025Q1

REPORT INFORMATION
  Report Type: Spontaneous
  Country: CN (occurrence: CN)
  Receive Date: 20250319
  Receipt Date: 20250319
  Transmission Date: 20250408
  Serious: Yes (Hospitalization)
  Sender: NOVARTIS
  Company Number: CN-002147023-NVSC2025CN043356

PATIENT
  Age: 63 Year
  Sex: Male
  Weight: 89 kg

DRUGS (1)
  1. TEGRETOL [Suspect]
     Active Substance: CARBAMAZEPINE
     Indication: Neuromyelitis optica spectrum disorder
     Dosage: 200 MG, BID
     Route: 048
     Dates: start: 20241205, end: 20250228

REACTIONS (12)
  - Drug eruption [Recovering/Resolving]
  - Hypersensitivity [Unknown]
  - Mouth ulceration [Not Recovered/Not Resolved]
  - Oropharyngeal discomfort [Unknown]
  - Erythema [Not Recovered/Not Resolved]
  - Pyrexia [Unknown]
  - Temperature intolerance [Unknown]
  - Chills [Unknown]
  - Swelling face [Unknown]
  - Skin exfoliation [Not Recovered/Not Resolved]
  - Face oedema [Not Recovered/Not Resolved]
  - Rash [Recovering/Resolving]

NARRATIVE: CASE EVENT DATE: 20250228
